FAERS Safety Report 7016085-2 (Version None)
Quarter: 2010Q3

REPORT INFORMATION
  Report Type: 
  Country: None (occurrence: None)
  Receive Date: 20100927
  Receipt Date: 20100913
  Transmission Date: 20110219
  Serious: Yes (Life-Threatening)
  Sender: FDA-Public Use
  Company Number: FR-BAYER-201039245GPV

PATIENT
  Sex: Female

DRUGS (7)
  1. ADALATE LP 20 MG [Suspect]
     Indication: TOCOLYSIS
     Dates: start: 20100524, end: 20100524
  2. TRACTOCILE [Suspect]
     Indication: TOCOLYSIS
     Dates: start: 20100524, end: 20100524
  3. ERYTHROMYCINE [Suspect]
     Indication: INFECTION PROPHYLAXIS
     Dates: start: 20100522, end: 20100524
  4. EPHEDRINE [Suspect]
     Dates: start: 20100524, end: 20100524
  5. CELESTONE [Suspect]
     Dates: start: 20100523, end: 20100524
  6. NEO-SYNEPHRINOL [Suspect]
     Dates: start: 20100524, end: 20100524
  7. VOLUVEN [Suspect]
     Dates: start: 20100524, end: 20100524

REACTIONS (6)
  - BLOOD PRESSURE DECREASED [None]
  - CHEST PAIN [None]
  - DYSPNOEA [None]
  - PLEURAL EFFUSION [None]
  - STILLBIRTH [None]
  - TACHYCARDIA [None]
